FAERS Safety Report 4990065-0 (Version None)
Quarter: 2006Q2

REPORT INFORMATION
  Report Type: 
  Country: None (occurrence: None)
  Receive Date: 20060503
  Receipt Date: 20060419
  Transmission Date: 20061013
  Serious: Yes (Life-Threatening, Hospitalization)
  Sender: FDA-Public Use
  Company Number: NL-GILEAD-2006-0009485

PATIENT
  Sex: Male
  Weight: 80 kg

DRUGS (18)
  1. VIREAD [Suspect]
     Indication: HIV INFECTION
     Route: 048
     Dates: start: 20050607, end: 20060325
  2. EMTRIVA [Suspect]
     Route: 048
     Dates: start: 20050706, end: 20060325
  3. BLINDED THERAPY [Suspect]
     Indication: HIV INFECTION
     Route: 048
     Dates: start: 20050706, end: 20060325
  4. KLACID [Suspect]
     Indication: MYCOBACTERIUM AVIUM COMPLEX INFECTION
     Route: 048
     Dates: start: 20060114, end: 20060330
  5. KALETRA [Concomitant]
     Route: 048
  6. INVIRASE [Concomitant]
     Route: 048
     Dates: start: 20050706, end: 20060325
  7. LOPID [Concomitant]
     Route: 048
     Dates: start: 20020605, end: 20060325
  8. GLUCOPHAGE [Concomitant]
     Route: 048
     Dates: start: 20060126, end: 20060325
  9. CORTIMOXAZOL [Concomitant]
     Route: 048
     Dates: start: 19930524, end: 20060325
  10. MYAMBUTOL [Concomitant]
     Route: 048
     Dates: start: 20060114, end: 20060403
  11. INSULIN INSULATARD NPH NORDISK [Concomitant]
     Route: 058
     Dates: start: 20060120
  12. INSULIN [Concomitant]
     Dates: start: 20060120
  13. PREDNISON [Concomitant]
     Route: 048
     Dates: start: 20060114
  14. FUZEON [Concomitant]
     Route: 048
     Dates: start: 20050706, end: 20060325
  15. ACTRAPID [Concomitant]
     Route: 058
     Dates: start: 20060301
  16. PREDNISOLONE ACETATE OPHTHALMIC SUSPENSION/DROPS [Concomitant]
     Route: 047
     Dates: start: 19970713
  17. FLUCONAZOLE [Concomitant]
     Route: 048
     Dates: start: 19950720, end: 20060325
  18. PREDISOLON [Concomitant]
     Route: 048
     Dates: start: 20060114

REACTIONS (3)
  - DYSPNOEA [None]
  - PYREXIA [None]
  - RENAL FAILURE ACUTE [None]
